FAERS Safety Report 7286873-6 (Version None)
Quarter: 2011Q1

REPORT INFORMATION
  Report Type: 
  Country: None (occurrence: None)
  Receive Date: 20110211
  Receipt Date: 20110126
  Transmission Date: 20110831
  Serious: Yes (Hospitalization)
  Sender: FDA-Public Use
  Company Number: DE-ROCHE-757579

PATIENT
  Sex: Female
  Weight: 72 kg

DRUGS (11)
  1. OMEPRAZOLE [Concomitant]
  2. LASIX [Concomitant]
     Indication: HYPERTENSION
  3. ACTRAPID [Concomitant]
  4. TRIAMTEREN COMP (HYDROCHLOROTHIAZIDE/TRIAMTERENE) [Concomitant]
     Indication: HYPERTENSION
     Route: 048
  5. XELODA [Suspect]
     Route: 048
     Dates: start: 20110117, end: 20110126
  6. METOPROLOL [Concomitant]
     Indication: HYPERTENSION
     Route: 048
  7. OPIPRAMOL [Concomitant]
  8. NOVALGIN [Concomitant]
     Dosage: LONG-TERM MEDICATION
  9. MIRTAZAPIN [Concomitant]
  10. CYLCOOESTROGYNAL [Concomitant]
     Dosage: LONG-TERM MEDICATION
  11. MCP [Concomitant]

REACTIONS (2)
  - ANGINA PECTORIS [None]
  - CORONARY ARTERY DISEASE [None]
